FAERS Safety Report 6377743-6 (Version None)
Quarter: 2009Q3

REPORT INFORMATION
  Report Type: 
  Country: None (occurrence: None)
  Receive Date: 20090925
  Receipt Date: 20090911
  Transmission Date: 20100115
  Serious: Yes (Other)
  Sender: FDA-Public Use
  Company Number: CHPA2009US18571

PATIENT
  Age: 38 Year
  Sex: Female

DRUGS (2)
  1. SLOW FE IRON TABLETS (NCH) [Suspect]
     Dosage: 320 MG, QD
     Route: 048
     Dates: start: 20050101
  2. SLOW FE IRON TABLETS (NCH) [Suspect]
     Dosage: 160 MG, QD
     Route: 048

REACTIONS (1)
  - COLECTOMY [None]
